FAERS Safety Report 25125269 (Version 6)
Quarter: 2025Q3

REPORT INFORMATION
  Report Type: Spontaneous
  Country: US (occurrence: US)
  Receive Date: 20250326
  Receipt Date: 20250821
  Transmission Date: 20251021
  Serious: No
  Sender: PFIZER
  Company Number: US-PFIZER INC-202500059438

PATIENT
  Age: 7 Year
  Sex: Male

DRUGS (3)
  1. GENOTROPIN [Suspect]
     Active Substance: SOMATROPIN
     Indication: Hypopituitarism
     Dosage: 1 MG, 1X/DAY, 7 DAYS/WEEK
  2. GENOTROPIN [Suspect]
     Active Substance: SOMATROPIN
     Indication: Growth hormone deficiency
     Dosage: 0.6 MG/DAY, 7 DAYS/WK
  3. GENOTROPIN [Suspect]
     Active Substance: SOMATROPIN
     Indication: Bone development abnormal

REACTIONS (2)
  - Device mechanical issue [Unknown]
  - Device physical property issue [Unknown]
